FAERS Safety Report 8472325-4 (Version None)
Quarter: 2012Q2

REPORT INFORMATION
  Report Type: 
  Country: None (occurrence: None)
  Receive Date: 20120627
  Receipt Date: 20120614
  Transmission Date: 20120825
  Serious: Yes (Life-Threatening, Hospitalization, Other)
  Sender: FDA-Public Use
  Company Number: US-ACTELION-A-NJ2012-66859

PATIENT

DRUGS (1)
  1. TRACLEER [Suspect]
     Indication: PULMONARY ARTERIAL HYPERTENSION
     Dosage: UNK
     Route: 048
     Dates: start: 20100118, end: 20120507

REACTIONS (4)
  - DIZZINESS [None]
  - LIVER FUNCTION TEST ABNORMAL [None]
  - SYNCOPE [None]
  - ASPARTATE AMINOTRANSFERASE INCREASED [None]
